FAERS Safety Report 4907796-0 (Version None)
Quarter: 2006Q1

REPORT INFORMATION
  Report Type: 
  Country: None (occurrence: None)
  Receive Date: 20060210
  Receipt Date: 20060201
  Transmission Date: 20060701
  Serious: Yes (Hospitalization, Disabling, Other)
  Sender: FDA-Public Use
  Company Number: GB-JNJFOC-20060200395

PATIENT
  Sex: Female

DRUGS (7)
  1. REMICADE [Suspect]
     Indication: RHEUMATOID ARTHRITIS
     Route: 042
  2. METHOTREXATE [Concomitant]
  3. ATENOLOL [Concomitant]
  4. CO-PROXAMOL [Concomitant]
  5. CO-PROXAMOL [Concomitant]
  6. FOLIC ACID [Concomitant]
  7. NABUTEMONE [Concomitant]

REACTIONS (2)
  - ISCHAEMIA [None]
  - LEG AMPUTATION [None]
